FAERS Safety Report 25902427 (Version 1)
Quarter: 2025Q4

REPORT INFORMATION
  Report Type: Spontaneous
  Country: US (occurrence: US)
  Receive Date: 20251009
  Receipt Date: 20251009
  Transmission Date: 20260119
  Serious: Yes (Hospitalization)
  Sender: BIOLINERX
  Company Number: US-MIMS-GAMIMC-949

PATIENT

DRUGS (13)
  1. APHEXDA [Suspect]
     Active Substance: MOTIXAFORTIDE ACETATE
     Indication: Haematopoietic stem cell mobilisation
     Dosage: (36.4 MG + 39.6 MG)=76 MILLIGRAM
     Route: 058
     Dates: start: 20250506
  2. APHEXDA [Suspect]
     Active Substance: MOTIXAFORTIDE ACETATE
     Dosage: 3.65 MILLIGRAM AT 02:03 P.M HOURS
     Route: 058
     Dates: start: 20250624
  3. APHEXDA [Suspect]
     Active Substance: MOTIXAFORTIDE ACETATE
     Dosage: 7.3 MILLIGRAM AT 02:40 P.M HOURS
     Route: 058
     Dates: start: 20250624
  4. APHEXDA [Suspect]
     Active Substance: MOTIXAFORTIDE ACETATE
     Dosage: 10.95 MILLIGRAM AT 03:12 P.M HOURS
     Route: 058
     Dates: start: 20250624
  5. APHEXDA [Suspect]
     Active Substance: MOTIXAFORTIDE ACETATE
     Dosage: 14.6MILLIGRAM AT 03:42 P.M HOURS
     Route: 058
     Dates: start: 20250624
  6. APHEXDA [Suspect]
     Active Substance: MOTIXAFORTIDE ACETATE
     Dosage: 18.25 MILLIGRAM AT 04:14 P.M HOURS
     Route: 058
     Dates: start: 20250624
  7. APHEXDA [Suspect]
     Active Substance: MOTIXAFORTIDE ACETATE
     Dosage: 21.25 MILLIGRAM AT 04:45 P.M HOURS
     Route: 058
     Dates: start: 20250624
  8. PLERIXAFOR [Concomitant]
     Active Substance: PLERIXAFOR
     Indication: Product used for unknown indication
     Route: 065
  9. MONTELUKAST [Concomitant]
     Active Substance: MONTELUKAST
     Indication: Premedication
     Dosage: 10 MILLIGRAM AT 03:12 P.M
     Route: 048
     Dates: start: 20250506
  10. MONTELUKAST [Concomitant]
     Active Substance: MONTELUKAST
     Dosage: 10 MILLIGRAM AT 01:39 HOURS AND 03:12 HOURS
     Route: 048
  11. FAMOTIDINE [Concomitant]
     Active Substance: FAMOTIDINE
     Indication: Premedication
     Dosage: 20 MILLIGRAM AT 03:12 P.M
     Route: 048
     Dates: start: 20250506
  12. DIPHENHYDRAMINE [Concomitant]
     Active Substance: DIPHENHYDRAMINE
     Indication: Premedication
     Dosage: 50 MILLIGRAM AT 03:12 P.M
     Route: 048
     Dates: start: 20250506
  13. ACETAMINOPHEN [Concomitant]
     Active Substance: ACETAMINOPHEN
     Indication: Premedication
     Dosage: 650 MILLIGRAM AT 03:12 P.M
     Route: 048

REACTIONS (1)
  - Hypersensitivity [Recovered/Resolved]

NARRATIVE: CASE EVENT DATE: 20250506
